FAERS Safety Report 5585283-7 (Version None)
Quarter: 2008Q1

REPORT INFORMATION
  Report Type: 
  Country: None (occurrence: None)
  Receive Date: 20080108
  Receipt Date: 20080108
  Transmission Date: 20080703
  Serious: No
  Sender: FDA-Public Use
  Company Number: None

PATIENT
  Age: 61 Year
  Sex: Female

DRUGS (9)
  1. AUGMENTIN '250' [Suspect]
     Dates: start: 20070327, end: 20070404
  2. DICLOXACILLIN [Suspect]
     Dates: start: 20070309, end: 20070319
  3. IMITREX [Concomitant]
  4. PREMARIN [Concomitant]
  5. ASPIRIN [Concomitant]
  6. BENADRYL [Concomitant]
  7. QUESTRAN [Concomitant]
  8. VITAMIN B-12 [Concomitant]
  9. ZOSTER [Concomitant]

REACTIONS (3)
  - CHOLESTASIS [None]
  - LIVER INJURY [None]
  - RASH [None]
